FAERS Safety Report 4685612-2 (Version None)
Quarter: 2005Q2

REPORT INFORMATION
  Report Type: 
  Country: None (occurrence: None)
  Receive Date: 20050608
  Receipt Date: 20050527
  Transmission Date: 20051028
  Serious: Yes (Disabling)
  Sender: FDA-Public Use
  Company Number: A044-002-005615

PATIENT
  Age: 76 Year
  Sex: Male
  Weight: 31 kg

DRUGS (2)
  1. ARICEPT [Suspect]
     Dosage: SEE IMAGE
     Route: 048
     Dates: end: 20050201
  2. EPILIM (VALPROATE SODIUM) [Concomitant]

REACTIONS (9)
  - ANOREXIA [None]
  - EARLY MORNING AWAKENING [None]
  - IRRITABILITY [None]
  - MERYCISM [None]
  - NAUSEA [None]
  - RESTLESSNESS [None]
  - RHINORRHOEA [None]
  - TRANSAMINASES INCREASED [None]
  - WEIGHT DECREASED [None]
